FAERS Safety Report 7069312-X (Version None)
Quarter: 2010Q4

REPORT INFORMATION
  Report Type: 
  Country: None (occurrence: None)
  Receive Date: 20101028
  Receipt Date: 20101020
  Transmission Date: 20110411
  Serious: Yes (Hospitalization)
  Sender: FDA-Public Use
  Company Number: PH-ABBOTT-10P-128-0681931-00

PATIENT
  Sex: Female

DRUGS (1)
  1. LUPROLEX [Suspect]
     Indication: LEIOMYOMA
     Route: 050

REACTIONS (2)
  - DIZZINESS [None]
  - HAEMORRHAGE [None]
